FAERS Safety Report 4960846-8 (Version None)
Quarter: 2006Q1

REPORT INFORMATION
  Report Type: 
  Country: None (occurrence: None)
  Receive Date: 20060331
  Receipt Date: 20060331
  Transmission Date: 20060701
  Serious: Yes (Hospitalization, Disabling, Other)
  Sender: FDA-Public Use
  Company Number: None

PATIENT
  Age: 58 Year
  Sex: Female
  Weight: 65.7716 kg

DRUGS (2)
  1. VIOXX [Suspect]
     Indication: ARTHRITIS
     Dates: start: 20030620, end: 20030701
  2. VIOXX [Suspect]
     Indication: ARTHRITIS
     Dates: start: 20060106, end: 20060305

REACTIONS (3)
  - KNEE ARTHROPLASTY [None]
  - LOSS OF CONTROL OF LEGS [None]
  - TOE DEFORMITY [None]
